FAERS Safety Report 5368031-5 (Version None)
Quarter: 2007Q2

REPORT INFORMATION
  Report Type: 
  Country: None (occurrence: None)
  Receive Date: 20070622
  Receipt Date: 20070611
  Transmission Date: 20071010
  Serious: Yes (Other)
  Sender: FDA-Public Use
  Company Number: FR-PFIZER INC-2007048544

PATIENT
  Sex: Female

DRUGS (2)
  1. ZITHROMAX [Suspect]
     Route: 048
  2. PROZAC [Concomitant]

REACTIONS (2)
  - HAEMATOMA [None]
  - METRORRHAGIA [None]
